FAERS Safety Report 11428627 (Version 1)
Quarter: 2015Q3

REPORT INFORMATION
  Report Type: Spontaneous
  Country: US (occurrence: US)
  Receive Date: 20150828
  Receipt Date: 20150828
  Transmission Date: 20151125
  Serious: No
  Sender: FDA-Public Use
  Company Number: US-ROCHE-1231988

PATIENT
  Sex: Male

DRUGS (4)
  1. RIBAVIRIN. [Suspect]
     Active Substance: RIBAVIRIN
     Dosage: 600MG 2/1 DAILY
     Route: 065
  2. PEGASYS [Suspect]
     Active Substance: PEGINTERFERON ALFA-2A
     Indication: HEPATITIS C
     Route: 058
     Dates: start: 20130531
  3. RIBAVIRIN. [Suspect]
     Active Substance: RIBAVIRIN
     Indication: HEPATITIS C
     Dosage: 1000MG 2/3 DAILY
     Route: 065
     Dates: start: 20130531
  4. VICTRELIS [Concomitant]
     Active Substance: BOCEPREVIR
     Indication: HEPATITIS C
     Route: 065

REACTIONS (2)
  - Nausea [Not Recovered/Not Resolved]
  - Haemoglobin decreased [Unknown]
